FAERS Safety Report 6790043-5 (Version None)
Quarter: 2010Q2

REPORT INFORMATION
  Report Type: 
  Country: None (occurrence: None)
  Receive Date: 20100624
  Receipt Date: 20100614
  Transmission Date: 20101027
  Serious: Yes (Hospitalization)
  Sender: FDA-Public Use
  Company Number: IT-PERRIGO-10IT010525

PATIENT
  Age: 42 Year
  Sex: Male

DRUGS (2)
  1. MESALAMINE [Suspect]
     Indication: COLITIS ULCERATIVE
     Dosage: 3.2 G, QD
     Route: 065
  2. BECLOMETHASONE DIPROPIONATE [Concomitant]
     Indication: COLITIS ULCERATIVE
     Dosage: UNK
     Route: 061

REACTIONS (11)
  - ANAEMIA [None]
  - CHEST PAIN [None]
  - CHILLS [None]
  - EOSINOPHILIA [None]
  - EOSINOPHILIC PNEUMONIA [None]
  - HAEMATURIA [None]
  - HYPERSENSITIVITY [None]
  - LEUKOCYTURIA [None]
  - PERICARDITIS [None]
  - PROTEINURIA [None]
  - PYREXIA [None]
